FAERS Safety Report 15113039 (Version 1)
Quarter: 2018Q3

REPORT INFORMATION
  Report Type: Spontaneous
  Country: SG (occurrence: SG)
  Receive Date: 20180706
  Receipt Date: 20180706
  Transmission Date: 20181010
  Serious: Yes (Life-Threatening)
  Sender: FDA-Public Use
  Company Number: SG-SUN PHARMACEUTICAL INDUSTRIES LTD-2018R1-168369

PATIENT
  Age: 41 Year
  Sex: Female

DRUGS (1)
  1. AMITRIPTYLINE [Suspect]
     Active Substance: AMITRIPTYLINE
     Indication: PRODUCT USED FOR UNKNOWN INDICATION
     Dosage: UNK
     Route: 065

REACTIONS (2)
  - Overdose [Recovered/Resolved]
  - Electrocardiogram abnormal [Recovered/Resolved]
